FAERS Safety Report 11743070 (Version 15)
Quarter: 2018Q2

REPORT INFORMATION
  Report Type: Spontaneous
  Country: US (occurrence: US)
  Receive Date: 20151116
  Receipt Date: 20180621
  Transmission Date: 20180711
  Serious: Yes (Hospitalization)
  Sender: FDA-Public Use
  Company Number: US-ACTELION PHARMACEUTICALS US, INC.-A-US2015-113393

PATIENT
  Age: 75 Year
  Sex: Female
  Weight: 92.52 kg

DRUGS (6)
  1. REMODULIN [Concomitant]
     Active Substance: TREPROSTINIL
     Dosage: 93 NG/KG, PER MIN
  2. PROCARDIA [Concomitant]
     Active Substance: NIFEDIPINE
  3. NIFEDIPINE. [Concomitant]
     Active Substance: NIFEDIPINE
  4. TRACLEER [Suspect]
     Active Substance: BOSENTAN
     Dosage: 125 MG, BID
     Route: 048
  5. COUMADIN [Concomitant]
     Active Substance: WARFARIN SODIUM
  6. TRACLEER [Suspect]
     Active Substance: BOSENTAN
     Indication: PULMONARY ARTERIAL HYPERTENSION
     Dosage: 125 MG, BID
     Route: 048
     Dates: start: 20060207

REACTIONS (28)
  - Dyspnoea [Recovering/Resolving]
  - Abdominal discomfort [Unknown]
  - Lethargy [Unknown]
  - Pyrexia [Unknown]
  - Asthenia [Unknown]
  - Palpitations [Unknown]
  - Fatigue [Recovering/Resolving]
  - Depressed mood [Unknown]
  - Urinary tract infection [Unknown]
  - Headache [Recovering/Resolving]
  - Bladder spasm [Unknown]
  - Blood creatinine increased [Unknown]
  - Decreased appetite [Unknown]
  - Erythema [Recovering/Resolving]
  - Dizziness postural [Recovering/Resolving]
  - Cardiac flutter [Unknown]
  - Fall [Unknown]
  - Device related infection [Unknown]
  - Catheter management [Unknown]
  - Diarrhoea [Unknown]
  - Dermatitis contact [Unknown]
  - Drug dose omission [Unknown]
  - Pneumonia [Unknown]
  - Dizziness [Recovering/Resolving]
  - Device use error [Unknown]
  - Bacteraemia [Unknown]
  - Nausea [Unknown]
  - Flushing [Recovering/Resolving]

NARRATIVE: CASE EVENT DATE: 20180129
